FAERS Safety Report 25813399 (Version 1)
Quarter: 2025Q3

REPORT INFORMATION
  Report Type: Spontaneous
  Country: US (occurrence: US)
  Receive Date: 20250917
  Receipt Date: 20250917
  Transmission Date: 20251021
  Serious: No
  Sender: DR REDDYS
  Company Number: US-DRL-USA-USA/2025/09/013586

PATIENT
  Sex: Female

DRUGS (3)
  1. HABITROL [Suspect]
     Active Substance: NICOTINE
     Indication: Ex-tobacco user
  2. WELLBUTRIN [Suspect]
     Active Substance: BUPROPION HYDROCHLORIDE
     Indication: Depression
  3. WELLBUTRIN [Suspect]
     Active Substance: BUPROPION HYDROCHLORIDE
     Indication: Anxiety

REACTIONS (3)
  - Dizziness [Unknown]
  - Anxiety [Unknown]
  - Drug interaction [Unknown]
